FAERS Safety Report 4626125-3 (Version None)
Quarter: 2005Q1

REPORT INFORMATION
  Report Type: 
  Country: None (occurrence: None)
  Receive Date: 20050330
  Receipt Date: 20050316
  Transmission Date: 20050727
  Serious: Yes (Life-Threatening, Hospitalization, Disabling, Other)
  Sender: FDA-Public Use
  Company Number: US_0502113461

PATIENT
  Age: 0 Year
  Weight: 4 kg

DRUGS (2)
  1. HUMULIN L [Suspect]
     Dates: start: 19860101, end: 19870201
  2. PRENATAL VITAMINS [Concomitant]

REACTIONS (8)
  - BLOOD GLUCOSE DECREASED [None]
  - CONGENITAL ANOMALY [None]
  - CONGENITAL BRAIN DAMAGE [None]
  - CONGENITAL NEUROLOGICAL DISORDER [None]
  - DRUG EXPOSURE DURING PREGNANCY [None]
  - HYPOXIC ENCEPHALOPATHY [None]
  - PHARMACEUTICAL PRODUCT COMPLAINT [None]
  - RESPIRATORY DISORDER NEONATAL [None]
